FAERS Safety Report 12811052 (Version 2)
Quarter: 2017Q1

REPORT INFORMATION
  Report Type: Spontaneous
  Country: US (occurrence: US)
  Receive Date: 20161005
  Receipt Date: 20170112
  Transmission Date: 20170428
  Serious: Yes (Hospitalization)
  Sender: FDA-Public Use
  Company Number: US-EAGLE PHARMACEUTICALS, INC.-US-2016EAG000668

PATIENT

DRUGS (3)
  1. RITUXAN [Concomitant]
     Active Substance: RITUXIMAB
     Indication: B-CELL LYMPHOMA
     Dosage: UNK
     Dates: start: 20160412
  2. BENDEKA [Suspect]
     Active Substance: BENDAMUSTINE HYDROCHLORIDE
     Indication: B-CELL LYMPHOMA
     Dosage: 186 MG, CYCLE 1, DAYS 1 AND 2
     Dates: start: 20160413, end: 20160414
  3. ALLOPURINOL. [Concomitant]
     Active Substance: ALLOPURINOL
     Indication: B-CELL LYMPHOMA
     Dosage: UNK
     Dates: start: 201604

REACTIONS (5)
  - Cough [Unknown]
  - Pyrexia [Recovered/Resolved]
  - Rash maculo-papular [Recovered/Resolved]
  - Orthostatic hypotension [Unknown]
  - Pain [Unknown]

NARRATIVE: CASE EVENT DATE: 201604
